FAERS Safety Report 25143641 (Version 1)
Quarter: 2025Q2

REPORT INFORMATION
  Report Type: Spontaneous
  Country: SE (occurrence: SE)
  Receive Date: 20250401
  Receipt Date: 20250401
  Transmission Date: 20250716
  Serious: Yes (Other)
  Sender: NOVARTIS
  Company Number: SE-002147023-NVSC2025SE052494

PATIENT
  Age: 26 Year
  Sex: Female

DRUGS (1)
  1. COSENTYX [Suspect]
     Active Substance: SECUKINUMAB
     Indication: Juvenile spondyloarthritis
     Route: 065
     Dates: end: 20240312

REACTIONS (1)
  - Scleroderma [Unknown]

NARRATIVE: CASE EVENT DATE: 20230831
